FAERS Safety Report 15754823 (Version 2)
Quarter: 2018Q4

REPORT INFORMATION
  Report Type: Report from Study
  Country: None (occurrence: IL)
  Receive Date: 20181224
  Receipt Date: 20181226
  Transmission Date: 20190205
  Serious: Yes (Hospitalization)
  Sender: FDA-Public Use
  Company Number: IL-ABBVIE-18S-082-2599511-00

PATIENT
  Age: 63 Year
  Sex: Male

DRUGS (1)
  1. DUODOPA [Suspect]
     Active Substance: CARBIDOPA\LEVODOPA
     Indication: PARKINSON^S DISEASE
     Dosage: CURRENT MD- 7 ML, CD- 2.7 ML/ HOUR, ED- 1.5 ML
     Route: 050
     Dates: start: 20181015

REACTIONS (1)
  - Inguinal hernia strangulated [Recovered/Resolved]

NARRATIVE: CASE EVENT DATE: 20181212
